FAERS Safety Report 10459193 (Version 1)
Quarter: 2014Q3

REPORT INFORMATION
  Report Type: Spontaneous
  Country: US (occurrence: None)
  Receive Date: 20140915
  Receipt Date: 20140915
  Transmission Date: 20150326
  Serious: Yes (Hospitalization)
  Sender: FDA-Public Use
  Company Number: FK201403672

PATIENT
  Age: 63 Year
  Sex: Male
  Weight: 80.6 kg

DRUGS (17)
  1. FLUOROURACIL (FLUOROURACIL) [Suspect]
     Active Substance: FLUOROURACIL
     Indication: ADENOCARCINOMA PANCREAS
     Route: 040
     Dates: start: 20140602, end: 20140602
  2. DIAZEPAM (DIAZEPAM) [Concomitant]
     Active Substance: DIAZEPAM
  3. NOVOLOG [Concomitant]
     Active Substance: INSULIN ASPART
  4. INVESTIGATIONAL DRUG (INVESTIGATIONAL DRUG) (INVESTIGATIONAL DRUG) [Suspect]
     Active Substance: INVESTIGATIONAL PRODUCT
     Indication: ADENOCARCINOMA PANCREAS
     Route: 048
     Dates: start: 20140602, end: 20140813
  5. AMLODIPINE BESYLATE (AMLODIPINE BESYLATE) [Concomitant]
  6. HYDROCODONE W/PARACETAMOL (PROCET) [Concomitant]
  7. VITAMIN D (ERGOCALCIFEROL) [Concomitant]
     Active Substance: ERGOCALCIFEROL
  8. IRINOTECAN HCL [Suspect]
     Active Substance: IRINOTECAN HYDROCHLORIDE
     Indication: ADENOCARCINOMA PANCREAS
     Route: 042
     Dates: start: 20140602, end: 20140602
  9. OXALIPLATIN (OXALIPLATIN) [Suspect]
     Active Substance: OXALIPLATIN
     Indication: ADENOCARCINOMA PANCREAS
     Dates: start: 20140602, end: 20140602
  10. HUMULIN N (INSULIN HUMAN INJECTION, ISOPHANE) [Concomitant]
  11. LIDOCAINE W/PRILOCAINE HYDROCHLORIDE (EMLA) [Concomitant]
  12. LEUCOVORIN CALCIUM. [Suspect]
     Active Substance: LEUCOVORIN CALCIUM
     Indication: ADENOCARCINOMA PANCREAS
     Dates: start: 20140602, end: 20140602
  13. INSULIN (INSULIN) [Concomitant]
     Active Substance: INSULIN NOS
  14. ONDANSETRON HCL (ONDANSETRON HYDROCHLORIDE) [Concomitant]
     Active Substance: ONDANSETRON HYDROCHLORIDE
  15. PROCHLORPERAZINE MALEATE (PROCHLORPERAZINE MALEATE) [Concomitant]
     Active Substance: PROCHLORPERAZINE MALEATE
  16. GLUCAGON (GLUCAGON) [Concomitant]
  17. LANTUS [Concomitant]
     Active Substance: INSULIN GLARGINE

REACTIONS (1)
  - Cholangitis [None]

NARRATIVE: CASE EVENT DATE: 20140813
